FAERS Safety Report 23945985 (Version 2)
Quarter: 2024Q4

REPORT INFORMATION
  Report Type: Report from Study
  Country: IT (occurrence: IT)
  Receive Date: 20240606
  Receipt Date: 20241001
  Transmission Date: 20250114
  Serious: No
  Sender: SANDOZ
  Company Number: IT-SANDOZ-SDZ2024IT055391

PATIENT
  Sex: Female
  Weight: 30 kg

DRUGS (1)
  1. SOMATROPIN [Suspect]
     Active Substance: SOMATROPIN
     Indication: Growth hormone deficiency
     Dosage: 1.2 MG
     Route: 058
     Dates: start: 202401

REACTIONS (3)
  - Drug dose omission by device [Unknown]
  - Device occlusion [Unknown]
  - Device issue [Unknown]
